FAERS Safety Report 7920676-1 (Version None)
Quarter: 2011Q4

REPORT INFORMATION
  Report Type: 
  Country: None (occurrence: None)
  Receive Date: 20111117
  Receipt Date: 20111111
  Transmission Date: 20120403
  Serious: Yes (Hospitalization)
  Sender: FDA-Public Use
  Company Number: JP-BRISTOL-MYERS SQUIBB COMPANY-16203473

PATIENT
  Age: 78 Year
  Sex: Female

DRUGS (6)
  1. OMEPRAZOLE [Suspect]
     Indication: GASTROOESOPHAGEAL REFLUX DISEASE
     Route: 048
     Dates: start: 20110524, end: 20110916
  2. JANUVIA [Concomitant]
     Indication: DIABETES MELLITUS
     Route: 048
     Dates: start: 20100326
  3. GLIMEPIRIDE [Concomitant]
     Indication: DIABETES MELLITUS
     Route: 048
     Dates: start: 20091225
  4. AVAPRO [Suspect]
     Indication: HYPERTENSION
     Route: 048
     Dates: start: 20110819, end: 20110916
  5. CRESTOR [Suspect]
     Indication: HYPERLIPIDAEMIA
     Dosage: 22JUL-UNK:2.5MG 16AUG-22SEP11:5MG (29D)
     Route: 048
     Dates: start: 20110722, end: 20110916
  6. ACTOS [Concomitant]
     Indication: DIABETES MELLITUS
     Route: 048
     Dates: start: 20100212

REACTIONS (1)
  - IDIOPATHIC THROMBOCYTOPENIC PURPURA [None]
